FAERS Safety Report 18302283 (Version 2)
Quarter: 2021Q3

REPORT INFORMATION
  Report Type: Spontaneous
  Country: US (occurrence: US)
  Receive Date: 20200923
  Receipt Date: 20210716
  Transmission Date: 20211014
  Serious: Yes (Other)
  Sender: FDA-Public Use
  Company Number: US-STRIDES ARCOLAB LIMITED-2020SP011381

PATIENT
  Age: 47 Year
  Sex: Male

DRUGS (2)
  1. RANITIDINE. [Suspect]
     Active Substance: RANITIDINE
     Dosage: UNK (RANITIDINE); DAILY
     Route: 048
     Dates: start: 200001, end: 201701
  2. RANITIDINE. [Suspect]
     Active Substance: RANITIDINE
     Indication: DYSPEPSIA
     Dosage: UNK (ZANTAC); DAILY
     Route: 048
     Dates: start: 200001, end: 201701

REACTIONS (2)
  - Prostate cancer [Recovered/Resolved]
  - Bladder cancer [Recovered/Resolved]

NARRATIVE: CASE EVENT DATE: 20170601
